FAERS Safety Report 6199631-0 (Version None)
Quarter: 2009Q2

REPORT INFORMATION
  Report Type: 
  Country: None (occurrence: None)
  Receive Date: 20090522
  Receipt Date: 20090115
  Transmission Date: 20091009
  Serious: No
  Sender: FDA-Public Use
  Company Number: A0763800A

PATIENT
  Age: 69 Year
  Sex: Female

DRUGS (1)
  1. BACTROBAN [Suspect]
     Indication: SKIN INFECTION
     Route: 061

REACTIONS (1)
  - DRUG INEFFECTIVE [None]
